FAERS Safety Report 6365247-6 (Version None)
Quarter: 2009Q3

REPORT INFORMATION
  Report Type: 
  Country: None (occurrence: None)
  Receive Date: 20090919
  Receipt Date: 20090810
  Transmission Date: 20100115
  Serious: No
  Sender: FDA-Public Use
  Company Number: US-ABBOTT-09P-163-0590506-00

PATIENT
  Sex: Male

DRUGS (2)
  1. HUMIRA [Suspect]
     Indication: CROHN'S DISEASE
     Dates: start: 20080520
  2. HUMIRA [Suspect]

REACTIONS (6)
  - DIARRHOEA [None]
  - HAEMATOCHEZIA [None]
  - IMPAIRED HEALING [None]
  - SKIN LACERATION [None]
  - WEIGHT DECREASED [None]
  - WOUND INFECTION [None]
